FAERS Safety Report 4776779-6 (Version None)
Quarter: 2005Q3

REPORT INFORMATION
  Report Type: 
  Country: None (occurrence: None)
  Receive Date: 20050923
  Receipt Date: 20050916
  Transmission Date: 20060218
  Serious: Yes (Hospitalization)
  Sender: FDA-Public Use
  Company Number: US-BRISTOL-MYERS SQUIBB COMPANY-13114442

PATIENT
  Age: 74 Year
  Sex: Male
  Weight: 82 kg

DRUGS (12)
  1. ERBITUX [Suspect]
     Indication: PANCREATIC CARCINOMA
     Dosage: THERAPY INITIATED 27-APR-2005-CHEMOTHERAPY HELD 17-MAY-05.
     Route: 042
     Dates: start: 20050531, end: 20050531
  2. GEMCITABINE [Suspect]
     Indication: PANCREATIC CARCINOMA
     Dosage: THERAPY INITIATED 03-MAY-2005.
     Route: 042
     Dates: start: 20050603, end: 20050603
  3. RADIATION THERAPY [Suspect]
     Indication: PANCREATIC CARCINOMA
     Dosage: PTU-I-4439 CGY,PTU-II 4140 CGY,PTU-III-3680 CGY
     Dates: start: 20050503, end: 20050608
  4. NYSTATIN [Concomitant]
     Route: 048
     Dates: start: 20050525
  5. AMBIEN [Concomitant]
     Route: 048
     Dates: start: 20050525
  6. CLEOCIN [Concomitant]
     Route: 061
     Dates: start: 20050506
  7. KYTRIL [Concomitant]
     Route: 048
     Dates: start: 20050526
  8. DECADRON [Concomitant]
     Route: 048
     Dates: start: 20050520
  9. POTASSIUM CHLORIDE [Concomitant]
     Route: 048
     Dates: start: 20050520
  10. COMPAZINE [Concomitant]
     Dates: start: 20050427
  11. MAGNESIUM OXIDE [Concomitant]
     Dates: start: 20050518
  12. CIPROFLOXACIN [Concomitant]
     Dates: start: 20050508, end: 20050520

REACTIONS (6)
  - ANOREXIA [None]
  - DIARRHOEA [None]
  - FAILURE TO THRIVE [None]
  - GASTROINTESTINAL HAEMORRHAGE [None]
  - NAUSEA [None]
  - NEUTROPENIA [None]
